FAERS Safety Report 8000689-4 (Version None)
Quarter: 2011Q4

REPORT INFORMATION
  Report Type: 
  Country: None (occurrence: None)
  Receive Date: 20111219
  Receipt Date: 20111202
  Transmission Date: 20120403
  Serious: Yes (Hospitalization, Other)
  Sender: FDA-Public Use
  Company Number: 2011-01248

PATIENT
  Age: 44 Year
  Sex: Female
  Weight: 121.1104 kg

DRUGS (7)
  1. ATENOLOL [Concomitant]
  2. LOVAZA [Concomitant]
  3. MULTI-VITAMIN [Concomitant]
  4. AMLODIPINE BESYLATE [Suspect]
     Indication: HYPERTENSION
     Dosage: 5 MG (5 MG,1 IN 1 D), PER ORAL
     Route: 048
     Dates: start: 20111102, end: 20111104
  5. LORAZEPAM [Concomitant]
  6. PROTONIX [Concomitant]
  7. HUMALOG [Concomitant]

REACTIONS (11)
  - DRUG INEFFECTIVE [None]
  - THINKING ABNORMAL [None]
  - BLOOD PRESSURE INCREASED [None]
  - NAUSEA [None]
  - PRODUCT FORMULATION ISSUE [None]
  - WRONG TECHNIQUE IN DRUG USAGE PROCESS [None]
  - FEELING ABNORMAL [None]
  - DYSPNOEA [None]
  - INAPPROPRIATE AFFECT [None]
  - ANXIETY [None]
  - LYMPHADENOPATHY [None]
